FAERS Safety Report 10488728 (Version 1)
Quarter: 2014Q3

REPORT INFORMATION
  Report Type: Spontaneous
  Country: US (occurrence: None)
  Receive Date: 20140930
  Receipt Date: 20140930
  Transmission Date: 20150326
  Serious: Yes (Other)
  Sender: FDA-Public Use
  Company Number: 2011SGN00223

PATIENT
  Age: 36 Year
  Sex: Female
  Weight: 109.6 kg

DRUGS (17)
  1. HEPARIN-FRACTION (HEPARIN-FRACTION) [Concomitant]
  2. ACYCLOVIR (ACYCLOVIR) [Concomitant]
     Active Substance: ACYCLOVIR
  3. FAMOTIDINE (FAMOTIDINE) [Concomitant]
     Active Substance: FAMOTIDINE
  4. BRENTUXIMAB VEDOTIN [Suspect]
     Active Substance: BRENTUXIMAB VEDOTIN
     Indication: HODGKIN^S DISEASE
     Dosage: Q21D
     Route: 042
     Dates: start: 20110901, end: 20110901
  5. FLUCONAZOLE (FLUCONAZOLE) [Concomitant]
     Active Substance: FLUCONAZOLE
  6. SYNTHROID [Concomitant]
     Active Substance: LEVOTHYROXINE SODIUM
  7. FLUTICASONE PROPIONATE W/SALMETEROL (FLUTICASONE PROPIONATE W/SALMETEROL) [Concomitant]
  8. MONTELUKAST [Concomitant]
     Active Substance: MONTELUKAST SODIUM
  9. PENTAMIDINE (PENTAMIDINE ISETHIONATE) [Concomitant]
  10. LEVAQUIN [Concomitant]
     Active Substance: LEVOFLOXACIN
  11. METHYLPREDNISOLONE (METHYLPREDNISOLONE) [Concomitant]
     Active Substance: METHYLPREDNISOLONE
  12. PROTON PUMP INHIBITORS [Concomitant]
     Active Substance: UNSPECIFIED INGREDIENT
  13. LORAZEPAM (LORAZEPAM) [Concomitant]
     Active Substance: LORAZEPAM
  14. DEPO-PROVERA (MEDROXYPROGESTERONE ACETATE) [Concomitant]
  15. ALBUTEROL (SALBUTAMOL SULFATE) [Concomitant]
  16. SPIRONOLACTONE (SPIRONOLACTONE) [Concomitant]
     Active Substance: SPIRONOLACTONE
  17. DOCUSATE SODIUM W/SENNA (DOCUSATE SODIUM W/SENNA) [Concomitant]

REACTIONS (3)
  - Stem cell transplant [None]
  - Dyspnoea exertional [None]
  - Asthma [None]

NARRATIVE: CASE EVENT DATE: 20110903
